FAERS Safety Report 6024811-4 (Version None)
Quarter: 2008Q4

REPORT INFORMATION
  Report Type: 
  Country: None (occurrence: None)
  Receive Date: 20081230
  Receipt Date: 20081230
  Transmission Date: 20090506
  Serious: Yes (Other)
  Sender: FDA-Public Use
  Company Number: None

PATIENT
  Age: 35 Year
  Sex: Female
  Weight: 79.3795 kg

DRUGS (2)
  1. FLUOXETINE [Suspect]
     Indication: ANXIETY
     Dosage: 20MG CAPLETS 3 ONCE A DAY PO
     Route: 048
     Dates: start: 20080624, end: 20080930
  2. FLUOXETINE [Suspect]
     Indication: PANIC ATTACK
     Dosage: 20MG CAPLETS 3 ONCE A DAY PO
     Route: 048
     Dates: start: 20080624, end: 20080930

REACTIONS (15)
  - AGORAPHOBIA [None]
  - AKATHISIA [None]
  - ANOREXIA [None]
  - ANXIETY [None]
  - CRYING [None]
  - DEPRESSION [None]
  - DIZZINESS [None]
  - DRUG WITHDRAWAL SYNDROME [None]
  - IMPAIRED WORK ABILITY [None]
  - INFLUENZA LIKE ILLNESS [None]
  - INSOMNIA [None]
  - NAUSEA [None]
  - PERFORMANCE STATUS DECREASED [None]
  - RETCHING [None]
  - WEIGHT DECREASED [None]
